FAERS Safety Report 10191636 (Version 2)
Quarter: 2014Q2

REPORT INFORMATION
  Report Type: Spontaneous
  Country: GB (occurrence: None)
  Receive Date: 20140521
  Receipt Date: 20140528
  Transmission Date: 20141212
  Serious: Yes (Hospitalization)
  Sender: FDA-Public Use
  Company Number: AUR-APL-2014-05912

PATIENT
  Age: 75 Year
  Sex: Female

DRUGS (10)
  1. NAPROXEN (NAPROXEN) [Suspect]
     Indication: ARTHRALGIA
     Route: 048
     Dates: start: 20140430, end: 20140507
  2. NAPROXEN (NAPROXEN) [Suspect]
     Indication: JOINT SWELLING
     Route: 048
     Dates: start: 20140430, end: 20140507
  3. WARFARIN (WARFARIN) [Suspect]
     Indication: ATRIAL FIBRILLATION
     Dosage: AS REQUIRED
     Route: 048
  4. WARFARIN (WARFARIN) [Suspect]
     Indication: DEEP VEIN THROMBOSIS
     Dosage: AS REQUIRED
     Route: 048
  5. AMLODIPINE (AMLODIPINE) [Concomitant]
  6. BISOPROLOL (BISOPROLOL) [Concomitant]
  7. CO-CODAMOL (PANADEINE CO) [Concomitant]
  8. LEVOTHYROXINE (LEVOTHYROXINE) [Concomitant]
  9. OMEPRAZOLE (OMEPRAZOLE) [Concomitant]
  10. SIMVASTATIN (SIMVASTATIN) [Concomitant]

REACTIONS (3)
  - Epistaxis [None]
  - International normalised ratio increased [None]
  - Documented hypersensitivity to administered drug [None]
